FAERS Safety Report 18855539 (Version 1)
Quarter: 2021Q1

REPORT INFORMATION
  Report Type: Spontaneous
  Country: CA (occurrence: CA)
  Receive Date: 20210206
  Receipt Date: 20210206
  Transmission Date: 20210420
  Serious: Yes (Hospitalization, Other)
  Sender: FDA-Public Use
  Company Number: CA-TEVA-2021-CA-1876829

PATIENT
  Age: 71 Year
  Sex: Female
  Weight: 60 kg

DRUGS (2)
  1. METHOTREXATE. [Suspect]
     Active Substance: METHOTREXATE
     Indication: PRODUCT USED FOR UNKNOWN INDICATION
     Route: 058
  2. XELJANZ [Concomitant]
     Active Substance: TOFACITINIB CITRATE
     Indication: RHEUMATOID ARTHRITIS
     Dosage: 10 MILLIGRAM DAILY;
     Route: 048

REACTIONS (9)
  - Arthralgia [Unknown]
  - Felty^s syndrome [Unknown]
  - Febrile neutropenia [Unknown]
  - Illness [Unknown]
  - Large granular lymphocytosis [Unknown]
  - Neutropenia [Unknown]
  - Rotator cuff syndrome [Unknown]
  - Incorrect route of product administration [Unknown]
  - Off label use [Unknown]
